FAERS Safety Report 10418022 (Version 3)
Quarter: 2014Q3

REPORT INFORMATION
  Report Type: Spontaneous
  Country: US (occurrence: US)
  Receive Date: 20140829
  Receipt Date: 20140923
  Transmission Date: 20150326
  Serious: Yes (Death)
  Sender: FDA-Public Use
  Company Number: US-INCYTE CORPORATION-2014IN002458

PATIENT
  Age: 75 Year
  Sex: Male

DRUGS (13)
  1. TRAZODONE [Concomitant]
     Active Substance: TRAZODONE HYDROCHLORIDE
  2. PREDNISONE. [Concomitant]
     Active Substance: PREDNISONE
  3. METAMUCIL [Concomitant]
     Active Substance: PLANTAGO SEED
  4. FUROSEMIDE. [Concomitant]
     Active Substance: FUROSEMIDE
  5. FENTANYL. [Concomitant]
     Active Substance: FENTANYL
  6. CLONAZEPAM. [Concomitant]
     Active Substance: CLONAZEPAM
  7. ASPIRIN. [Concomitant]
     Active Substance: ASPIRIN
  8. CITALOPRAM [Concomitant]
     Active Substance: CITALOPRAM HYDROBROMIDE
  9. FOLIC ACID. [Concomitant]
     Active Substance: FOLIC ACID
  10. XELODA [Concomitant]
     Active Substance: CAPECITABINE
  11. JAKAFI [Suspect]
     Active Substance: RUXOLITINIB
     Indication: MYELOFIBROSIS
     Dosage: 5 MG, 3 TABLETS TWICE A DAY
     Route: 048
     Dates: start: 20140708
  12. JAKAFI [Suspect]
     Active Substance: RUXOLITINIB
     Dosage: 20 MG, BID
     Route: 048
     Dates: start: 20140819, end: 20140827
  13. PROBIOTIC                          /06395501/ [Concomitant]

REACTIONS (1)
  - Oesophageal cancer metastatic [Fatal]

NARRATIVE: CASE EVENT DATE: 20140827
